FAERS Safety Report 7568341-7 (Version None)
Quarter: 2011Q2

REPORT INFORMATION
  Report Type: 
  Country: None (occurrence: None)
  Receive Date: 20110623
  Receipt Date: 20110617
  Transmission Date: 20111010
  Serious: Yes (Hospitalization)
  Sender: FDA-Public Use
  Company Number: A0929869A

PATIENT
  Age: 70 Year
  Sex: Female

DRUGS (7)
  1. ASCORBIC ACID [Concomitant]
  2. VITAMIN D [Concomitant]
  3. TARCEVA [Concomitant]
  4. ADVAIR DISKUS 100/50 [Suspect]
     Indication: PRODUCT USED FOR UNKNOWN INDICATION
     Dosage: 1PUFF TWICE PER DAY
     Route: 055
  5. XANAX [Concomitant]
  6. DIFLUCAN [Concomitant]
  7. PROTONIX [Concomitant]

REACTIONS (4)
  - CANDIDIASIS [None]
  - CHEST PAIN [None]
  - THROAT TIGHTNESS [None]
  - PNEUMONIA [None]
